FAERS Safety Report 5291400-9 (Version None)
Quarter: 2007Q2

REPORT INFORMATION
  Report Type: 
  Country: None (occurrence: None)
  Receive Date: 20070402
  Receipt Date: 20070322
  Transmission Date: 20071010
  Serious: Yes (Hospitalization, Other)
  Sender: FDA-Public Use
  Company Number: 2007SP002221

PATIENT
  Sex: Female

DRUGS (1)
  1. TEMODAL [Suspect]
     Indication: GLIOBLASTOMA
     Dosage: 75 MG/M2; PO
     Route: 048
     Dates: start: 20070101, end: 20070130

REACTIONS (3)
  - CEREBRAL INFARCTION [None]
  - CONVULSION [None]
  - ENCEPHALITIS HERPES [None]
